FAERS Safety Report 6744159-X (Version None)
Quarter: 2010Q2

REPORT INFORMATION
  Report Type: 
  Country: None (occurrence: None)
  Receive Date: 20100527
  Receipt Date: 20100519
  Transmission Date: 20101027
  Serious: Yes (Hospitalization)
  Sender: FDA-Public Use
  Company Number: JP-WYE-H14520210

PATIENT
  Sex: Female

DRUGS (9)
  1. ZOSYN [Suspect]
     Indication: PNEUMONIA
     Route: 041
     Dates: start: 20100403, end: 20100404
  2. CARBOCISTEINE [Concomitant]
     Route: 048
  3. URSODIOL [Concomitant]
     Route: 048
  4. CLARITHROMYCIN [Concomitant]
     Route: 048
  5. SINGULAIR [Concomitant]
     Route: 048
  6. PHENOBARBITAL TAB [Concomitant]
     Indication: EPILEPSY
     Route: 048
  7. SENNOSIDE A [Concomitant]
     Indication: CONSTIPATION
     Route: 048
  8. TULOBUTEROL [Concomitant]
     Dosage: UNKNOWN
  9. THEOPHYLLINE [Concomitant]
     Route: 048

REACTIONS (2)
  - DRUG ERUPTION [None]
  - FLUSHING [None]
